FAERS Safety Report 7589040-1 (Version None)
Quarter: 2011Q3

REPORT INFORMATION
  Report Type: 
  Country: None (occurrence: None)
  Receive Date: 20110705
  Receipt Date: 20110627
  Transmission Date: 20111222
  Serious: Yes (Other)
  Sender: FDA-Public Use
  Company Number: DE-JNJFOC-20110611030

PATIENT
  Age: 14 Year
  Sex: Male

DRUGS (2)
  1. LAMOTRIGINE [Concomitant]
     Indication: CONVULSION
     Route: 065
  2. ITRACONAZOLE [Suspect]
     Indication: PRODUCT USED FOR UNKNOWN INDICATION
     Route: 048

REACTIONS (1)
  - CONVULSION [None]
